FAERS Safety Report 8611354 (Version 3)
Quarter: 2013Q3

REPORT INFORMATION
  Report Type: Spontaneous
  Country: TR (occurrence: TR)
  Receive Date: 20120613
  Receipt Date: 20130902
  Transmission Date: 20140515
  Serious: Yes (Hospitalization, Other)
  Sender: FDA-Public Use
  Company Number: TR-AMGEN-TURSP2012011992

PATIENT
  Age: 51 Year
  Sex: Male

DRUGS (2)
  1. ENBREL [Suspect]
     Indication: ANKYLOSING SPONDYLITIS
     Dosage: 50 MG, WEEKLY
     Route: 058
     Dates: start: 20110819, end: 201203
  2. ENBREL [Suspect]
     Dosage: 50 MG, QWK
     Route: 058
     Dates: end: 201305

REACTIONS (1)
  - Oedema [Not Recovered/Not Resolved]
